FAERS Safety Report 16054995 (Version 1)
Quarter: 2019Q1

REPORT INFORMATION
  Report Type: Spontaneous
  Country: US (occurrence: US)
  Receive Date: 20190310
  Receipt Date: 20190310
  Transmission Date: 20190418
  Serious: Yes (Other)
  Sender: FDA-Public Use
  Company Number: US-ROCHE-2276487

PATIENT
  Age: 71 Year
  Sex: Female

DRUGS (10)
  1. ACTEMRA [Suspect]
     Active Substance: TOCILIZUMAB
     Indication: TEMPORAL ARTERITIS
     Dosage: ONGOING: YES
     Route: 058
     Dates: start: 201807
  2. PREDNISONE. [Concomitant]
     Active Substance: PREDNISONE
     Dosage: ONGOING:NO
     Route: 048
     Dates: start: 201901, end: 201902
  3. LATANOPROST. [Concomitant]
     Active Substance: LATANOPROST
     Dosage: ONE LEFT IN THE LEFT EYE AT BEDTIME ;ONGOING: YES
     Route: 047
  4. FOSAMAX [Concomitant]
     Active Substance: ALENDRONATE SODIUM
     Dosage: ONGOING: NO
     Route: 048
  5. PREDNISONE. [Concomitant]
     Active Substance: PREDNISONE
     Dosage: ONGOING:YES
     Route: 048
     Dates: start: 201902
  6. PREDNISOLONE ACETATE. [Concomitant]
     Active Substance: PREDNISOLONE ACETATE
     Dosage: ONE DROP IN THE LEFT EYE TWICE DAILY ;ONGOING: YES
     Route: 047
  7. DORZOLAMIDE HYDROCHLORIDE AND TIMOLOL MALEATE [Concomitant]
     Active Substance: DORZOLAMIDE HYDROCHLORIDE\TIMOLOL MALEATE
     Dosage: ONE DROP IN THE LEFT EYE TWICE DAILY ;ONGOING: YES
     Route: 047
  8. ATROPINE. [Concomitant]
     Active Substance: ATROPINE
     Dosage: ONGOING: NO
     Route: 047
  9. ALPHAGAN P [Concomitant]
     Active Substance: BRIMONIDINE TARTRATE
     Dosage: ONGOING: NO
     Route: 047
  10. PREDNISONE. [Concomitant]
     Active Substance: PREDNISONE
     Indication: TEMPORAL ARTERITIS
     Dosage: UNKNOWN CHANGING DOSES FROM JUL 2018 TO JAN 2019 ;ONGOING: NO
     Route: 048
     Dates: start: 201807

REACTIONS (12)
  - Nausea [Recovered/Resolved]
  - Gastric disorder [Recovered/Resolved]
  - Feeding disorder [Recovered/Resolved]
  - Ageusia [Not Recovered/Not Resolved]
  - Dizziness [Recovered/Resolved]
  - Gait disturbance [Recovered/Resolved]
  - Glaucoma [Not Recovered/Not Resolved]
  - Anosmia [Not Recovered/Not Resolved]
  - Hypertension [Recovered/Resolved]
  - Feeling hot [Unknown]
  - Memory impairment [Not Recovered/Not Resolved]
  - Asthenia [Not Recovered/Not Resolved]

NARRATIVE: CASE EVENT DATE: 201812
